FAERS Safety Report 4992799-0 (Version None)
Quarter: 2006Q1

REPORT INFORMATION
  Report Type: 
  Country: None (occurrence: None)
  Receive Date: 20060313
  Receipt Date: 20060120
  Transmission Date: 20060701
  Serious: No
  Sender: FDA-Public Use
  Company Number: 2006-BP-00820BP

PATIENT
  Age: 67 Year
  Sex: Female

DRUGS (4)
  1. SPIRIVA [Suspect]
     Indication: CHRONIC OBSTRUCTIVE PULMONARY DISEASE
     Dosage: 18 MCG (18 MCG), IH
     Route: 055
     Dates: start: 20050701
  2. ATACAND [Suspect]
     Indication: HYPERTENSION
  3. SINEMET [Suspect]
     Indication: PARKINSON'S DISEASE
  4. PREMARIN [Concomitant]

REACTIONS (5)
  - ASTHENIA [None]
  - FALL [None]
  - FATIGUE [None]
  - JOINT SWELLING [None]
  - SWELLING [None]
